FAERS Safety Report 7692233-6 (Version None)
Quarter: 2011Q3

REPORT INFORMATION
  Report Type: 
  Country: None (occurrence: None)
  Receive Date: 20110818
  Receipt Date: 20110809
  Transmission Date: 20111222
  Serious: Yes (Other)
  Sender: FDA-Public Use
  Company Number: US-ASTRAZENECA-2011SE35148

PATIENT
  Age: 51 Year
  Sex: Male

DRUGS (1)
  1. NEXIUM [Suspect]
     Indication: GASTROOESOPHAGEAL REFLUX DISEASE
     Route: 048
     Dates: start: 20110524

REACTIONS (4)
  - DISCOMFORT [None]
  - ANGINA PECTORIS [None]
  - MYOCARDIAL INFARCTION [None]
  - DRUG INEFFECTIVE [None]
